FAERS Safety Report 9286998 (Version 1)
Quarter: 2013Q2

REPORT INFORMATION
  Report Type: Spontaneous
  Country: US (occurrence: None)
  Receive Date: 20130508
  Receipt Date: 20130508
  Transmission Date: 20140414
  Serious: Yes (Other)
  Sender: FDA-Public Use
  Company Number: FK201301452

PATIENT
  Age: 71 Year
  Sex: Male

DRUGS (3)
  1. CISPLATIN [Suspect]
     Indication: PRODUCT USED FOR UNKNOWN INDICATION
  2. DOCETAXEL [Suspect]
     Indication: PRODUCT USED FOR UNKNOWN INDICATION
  3. ROLAPITANT [Suspect]
     Indication: PROPHYLAXIS OF NAUSEA AND VOMITING

REACTIONS (3)
  - Ileus paralytic [None]
  - Nausea [None]
  - Vomiting [None]
